FAERS Safety Report 8165716-2 (Version None)
Quarter: 2012Q1

REPORT INFORMATION
  Report Type: 
  Country: None (occurrence: None)
  Receive Date: 20120227
  Receipt Date: 20110204
  Transmission Date: 20120608
  Serious: No
  Sender: FDA-Public Use
  Company Number: US-MYLANLABS-2011S1000313

PATIENT
  Age: 21 Year
  Sex: Female

DRUGS (2)
  1. AMNESTEEM [Suspect]
     Route: 048
  2. AMNESTEEM [Suspect]
     Indication: ACNE
     Route: 048
     Dates: start: 20100901, end: 20101001

REACTIONS (3)
  - ALANINE AMINOTRANSFERASE INCREASED [None]
  - GASTROENTERITIS VIRAL [None]
  - ASPARTATE AMINOTRANSFERASE INCREASED [None]
